FAERS Safety Report 7000369-8 (Version None)
Quarter: 2010Q3

REPORT INFORMATION
  Report Type: 
  Country: None (occurrence: None)
  Receive Date: 20100920
  Receipt Date: 20091105
  Transmission Date: 20110219
  Serious: Yes (Other)
  Sender: FDA-Public Use
  Company Number: US-ASTRAZENECA-2008UW27575

PATIENT
  Age: 640 Month
  Sex: Female
  Weight: 102.1 kg

DRUGS (7)
  1. SEROQUEL [Suspect]
     Indication: BIPOLAR DISORDER
     Dosage: 25 MG, 50 MG, 100 MG, 400 MG
     Route: 048
     Dates: start: 20050228, end: 20071029
  2. SEROQUEL [Suspect]
     Indication: DEPRESSION
     Dosage: 25 MG, 50 MG, 100 MG, 400 MG
     Route: 048
     Dates: start: 20050228, end: 20071029
  3. GEODON [Concomitant]
     Dates: start: 20071101
  4. CLONAZEPAM [Concomitant]
     Dates: start: 20060901
  5. NORTRIPTYLINE HYDROCHLORIDE [Concomitant]
     Dates: start: 20080101
  6. TRAZODONE HCL [Concomitant]
     Dates: start: 20070101
  7. LAMICTAL [Concomitant]
     Dates: start: 20050101

REACTIONS (3)
  - BLOOD CHOLESTEROL INCREASED [None]
  - DIABETES MELLITUS [None]
  - OVERDOSE [None]
